FAERS Safety Report 8218428-0 (Version None)
Quarter: 2012Q1

REPORT INFORMATION
  Report Type: 
  Country: None (occurrence: None)
  Receive Date: 20120319
  Receipt Date: 20120315
  Transmission Date: 20120608
  Serious: No
  Sender: FDA-Public Use
  Company Number: US-PFIZER INC-2012068727

PATIENT
  Sex: Female
  Weight: 79.819 kg

DRUGS (9)
  1. OMEPRAZOLE [Concomitant]
     Indication: GASTRIC DISORDER
     Dosage: 4 MG, DAILY
  2. NITROFURANTOIN [Concomitant]
     Indication: RENAL DISORDER
     Dosage: UNK
  3. NIACIN [Concomitant]
     Indication: LOW DENSITY LIPOPROTEIN INCREASED
     Dosage: 750 MG, UNK
  4. ETODOLAC [Concomitant]
     Indication: FIBROMYALGIA
     Dosage: UNK
  5. AMLODIPINE [Concomitant]
     Indication: HYPERTENSION
     Dosage: 2.5 MG, UNK
  6. LIPITOR [Suspect]
     Indication: LOW DENSITY LIPOPROTEIN INCREASED
     Dosage: 20 MG, UNK
  7. METHYLPREDNISOLONE [Concomitant]
     Dosage: 4 MG, DAILY
  8. FISH OIL [Concomitant]
     Indication: LOW DENSITY LIPOPROTEIN INCREASED
     Dosage: 4000 MG, UNK
  9. LIPITOR [Suspect]
     Indication: BLOOD CHOLESTEROL INCREASED
     Dosage: 40 MG, UNK
     Dates: start: 20111101

REACTIONS (2)
  - JOINT STIFFNESS [None]
  - FEELING ABNORMAL [None]
